FAERS Safety Report 10798362 (Version 1)
Quarter: 2015Q1

REPORT INFORMATION
  Report Type: Spontaneous
  Country: BE (occurrence: BE)
  Receive Date: 20150216
  Receipt Date: 20150216
  Transmission Date: 20150721
  Serious: Yes (Other)
  Sender: FDA-Public Use
  Company Number: BE-BAYER-2015-018325

PATIENT
  Sex: Female

DRUGS (2)
  1. CIPROXINE [Suspect]
     Active Substance: CIPROFLOXACIN
     Indication: URINARY TRACT INFECTION
     Dosage: 500 MG, UNK
  2. ZOLPIDEM [Concomitant]
     Active Substance: ZOLPIDEM\ZOLPIDEM TARTRATE
     Dosage: UNK

REACTIONS (8)
  - Malaise [None]
  - VIIth nerve paralysis [None]
  - VIIth nerve paralysis [None]
  - Tremor [None]
  - Face oedema [None]
  - Lacrimation increased [None]
  - Eye disorder [None]
  - Feeling hot [None]

NARRATIVE: CASE EVENT DATE: 20150124
